FAERS Safety Report 13840876 (Version 2)
Quarter: 2017Q3

REPORT INFORMATION
  Report Type: Spontaneous
  Country: CA (occurrence: CA)
  Receive Date: 20170807
  Receipt Date: 20170814
  Transmission Date: 20171127
  Serious: Yes (Other)
  Sender: FDA-Public Use
  Company Number: CA-PFIZER INC-2017336265

PATIENT
  Age: 56 Year
  Sex: Female

DRUGS (4)
  1. HYDROXYCHLOROQUINE /00072603/ [Suspect]
     Active Substance: HYDROXYCHLOROQUINE SULFATE
     Dosage: 400 MG, UNK
     Dates: start: 200801, end: 201110
  2. SULFASALAZINE. [Suspect]
     Active Substance: SULFASALAZINE
     Indication: RHEUMATOID ARTHRITIS
     Dosage: 500 MG, 2X/DAY
     Dates: start: 201404, end: 201408
  3. SULFASALAZINE. [Suspect]
     Active Substance: SULFASALAZINE
     Dosage: 500 MG, 2X/DAY
     Dates: start: 201507
  4. METHOTREXATE SODIUM. [Suspect]
     Active Substance: METHOTREXATE SODIUM
     Indication: RHEUMATOID ARTHRITIS
     Dosage: 20 MG, WEEKLY
     Dates: start: 201011

REACTIONS (2)
  - Drug ineffective [Unknown]
  - Thrombosis [Unknown]

NARRATIVE: CASE EVENT DATE: 201707
